FAERS Safety Report 8956079 (Version 2)
Quarter: 2012Q4

REPORT INFORMATION
  Report Type: 
  Country: US (occurrence: US)
  Receive Date: 20121210
  Receipt Date: 20121227
  Transmission Date: 20130627
  Serious: Yes (Disabling, Other)
  Sender: FDA-Public Use
  Company Number: US-PFIZER INC-2012305352

PATIENT
  Age: 40 Year
  Sex: Male

DRUGS (1)
  1. ZITHROMAX [Suspect]
     Indication: BRONCHITIS
     Dosage: 250 mg, 2x/day
     Route: 048
     Dates: start: 20121203, end: 20121204

REACTIONS (2)
  - Deafness [Unknown]
  - Tinnitus [Unknown]
